FAERS Safety Report 24351110 (Version 1)
Quarter: 2024Q3

REPORT INFORMATION
  Report Type: Spontaneous
  Country: US (occurrence: US)
  Receive Date: 20240923
  Receipt Date: 20240923
  Transmission Date: 20241017
  Serious: No
  Sender: BIOGEN
  Company Number: US-BIOGEN-2024BI01282624

PATIENT
  Age: 22 Year
  Sex: Female

DRUGS (1)
  1. SPINRAZA [Suspect]
     Active Substance: NUSINERSEN
     Indication: Spinal muscular atrophy
     Route: 050
     Dates: start: 20190424

REACTIONS (8)
  - Off label use [Unknown]
  - Procedural headache [Recovered/Resolved]
  - Post procedural complication [Recovered/Resolved]
  - Dysphonia [Recovered/Resolved]
  - Post procedural fever [Recovered/Resolved]
  - Painful respiration [Recovered/Resolved]
  - Secretion discharge [Recovered/Resolved]
  - Respiratory tract infection viral [Unknown]

NARRATIVE: CASE EVENT DATE: 20240909
